FAERS Safety Report 8971014 (Version 1)
Quarter: 2012Q4

REPORT INFORMATION
  Report Type: 
  Country: US (occurrence: US)
  Receive Date: 20121218
  Receipt Date: 20121218
  Transmission Date: 20130627
  Serious: No
  Sender: FDA-Public Use
  Company Number: US-BRISTOL-MYERS SQUIBB COMPANY-17029141

PATIENT
  Age: 47 Year
  Sex: Female

DRUGS (6)
  1. ABILIFY [Suspect]
     Dosage: inter on 17Sep12
  2. SEROQUEL [Suspect]
  3. PROZAC [Suspect]
  4. TRILEPTAL [Concomitant]
  5. LISINOPRIL [Concomitant]
  6. SYNTHROID [Concomitant]

REACTIONS (3)
  - Dysarthria [Unknown]
  - Tongue biting [Unknown]
  - Crying [Unknown]
